FAERS Safety Report 18565959 (Version 1)
Quarter: 2020Q4

REPORT INFORMATION
  Report Type: Spontaneous
  Country: FI (occurrence: FI)
  Receive Date: 20201201
  Receipt Date: 20201201
  Transmission Date: 20210114
  Serious: Yes (Death)
  Sender: FDA-Public Use
  Company Number: FI-TEVA-2020-FI-1853836

PATIENT
  Age: 5 Decade
  Sex: Male

DRUGS (5)
  1. METHYLPHENIDATE. [Suspect]
     Active Substance: METHYLPHENIDATE
     Indication: ATTENTION DEFICIT HYPERACTIVITY DISORDER
     Route: 065
  2. NALOXONE [Concomitant]
     Active Substance: NALOXONE
     Indication: DRUG WITHDRAWAL MAINTENANCE THERAPY
     Route: 065
  3. SUBOXONE [Suspect]
     Active Substance: BUPRENORPHINE HYDROCHLORIDE\NALOXONE HYDROCHLORIDE
     Indication: DRUG WITHDRAWAL MAINTENANCE THERAPY
     Route: 065
  4. DIAZEPAM. [Suspect]
     Active Substance: DIAZEPAM
     Indication: ATTENTION DEFICIT HYPERACTIVITY DISORDER
     Route: 065
  5. ALPRAZOLAM. [Suspect]
     Active Substance: ALPRAZOLAM
     Indication: PRODUCT USED FOR UNKNOWN INDICATION
     Route: 065

REACTIONS (6)
  - Cerebral congestion [Fatal]
  - Brain oedema [Fatal]
  - Respiratory depression [Fatal]
  - Pulmonary oedema [Fatal]
  - Hyperthermia [Fatal]
  - Pulmonary congestion [Fatal]
